FAERS Safety Report 12459627 (Version 1)
Quarter: 2016Q2

REPORT INFORMATION
  Report Type: Spontaneous
  Country: US (occurrence: US)
  Receive Date: 20160613
  Receipt Date: 20160613
  Transmission Date: 20160815
  Serious: Yes (Hospitalization)
  Sender: FDA-Public Use
  Company Number: US-ACTAVIS-2016-12111

PATIENT
  Age: 62 Year
  Sex: Male

DRUGS (1)
  1. DOXYCYCLINE (ACTAVIS LABORATORIES FL) [Suspect]
     Active Substance: DOXYCYCLINE
     Indication: LACERATION
     Dosage: UNKNOWN
     Route: 065

REACTIONS (2)
  - Drug eruption [Recovering/Resolving]
  - Photosensitivity reaction [Recovering/Resolving]
